FAERS Safety Report 8552762 (Version 4)
Quarter: 2013Q2

REPORT INFORMATION
  Report Type: Report from Study
  Country: FR (occurrence: FR)
  Receive Date: 20120508
  Receipt Date: 20130501
  Transmission Date: 20140414
  Serious: Yes (Other)
  Sender: FDA-Public Use
  Company Number: FR-ROCHE-1066324

PATIENT
  Age: 62 Year
  Sex: Female
  Weight: 52 kg

DRUGS (25)
  1. RHUPH20/RITUXIMAB [Suspect]
     Indication: B-CELL LYMPHOMA
     Dosage: LAST DOSE PRIOR TO SAE: 22 MAR 2012
     Route: 058
     Dates: start: 20120322
  2. RHUPH20/RITUXIMAB [Suspect]
     Dosage: LAST DOSE PRIOR TO SAE: 22 MAR 2012
     Route: 058
     Dates: start: 20120418
  3. RHUPH20/RITUXIMAB [Suspect]
     Route: 058
     Dates: start: 20120515
  4. RHUPH20/RITUXIMAB [Suspect]
     Dosage: LAST DOSE PRIOR TO SAE ON 13 JUN 2012
     Route: 058
     Dates: start: 20120613
  5. RHUPH20/RITUXIMAB [Suspect]
     Dosage: LAST DOSE PRIOR TO SAE ON 13 JUN 2012
     Route: 058
     Dates: start: 20120711
  6. RHUPH20/RITUXIMAB [Suspect]
     Dosage: LAST DOSE PRIOR TO SAE 23 FEB 2013.
     Route: 058
     Dates: start: 20130223
  7. RHUPH20/RITUXIMAB [Suspect]
     Dosage: LAST DOSE PRIOR TO SAE ON 13 JUN 2012
     Route: 058
     Dates: start: 20121015
  8. RITUXIMAB [Suspect]
     Indication: B-CELL LYMPHOMA
     Dosage: LAST DOSE PRIOR TO SAE: 22 MAR 2012
     Route: 042
     Dates: start: 20120223
  9. LEVOTHYROX [Concomitant]
     Indication: HYPOTHYROIDISM
     Route: 065
     Dates: start: 2008
  10. DUROGESIC [Concomitant]
     Indication: PAIN
     Dosage: 25 PRN AS NEEDED
     Route: 065
     Dates: start: 201106
  11. SPECIAFOLDINE [Concomitant]
     Indication: ANAEMIA
     Route: 065
     Dates: start: 20120120, end: 20120223
  12. VITAMIN B12 [Concomitant]
     Indication: ANAEMIA
     Route: 065
     Dates: start: 20120120, end: 20120223
  13. KAYEXALATE [Concomitant]
     Indication: PROPHYLAXIS
     Route: 065
     Dates: start: 20120221, end: 20120223
  14. DOLIPRANE [Concomitant]
     Indication: PYREXIA
     Route: 065
     Dates: start: 20120221, end: 20120418
  15. LORAMYC [Concomitant]
     Route: 065
     Dates: start: 20120222, end: 20120418
  16. ATARAX [Concomitant]
     Indication: INSOMNIA
     Route: 065
     Dates: start: 20120222
  17. TAZOCILLINE [Concomitant]
     Indication: INFECTION
     Route: 065
     Dates: start: 20120221, end: 20120224
  18. AMIKLIN [Concomitant]
     Indication: INFECTION
     Route: 065
     Dates: start: 20120221, end: 20120223
  19. ZELITREX [Concomitant]
     Indication: INFECTION PROPHYLAXIS
     Route: 065
     Dates: start: 20120222
  20. BACTRIM FORTE [Concomitant]
     Indication: INFECTION PROPHYLAXIS
     Route: 065
     Dates: start: 20120222
  21. TAVANIC [Concomitant]
     Indication: INFECTION PROPHYLAXIS
     Route: 065
     Dates: start: 20120224, end: 20120225
  22. CALCIPARINE [Concomitant]
     Indication: PHLEBITIS
     Route: 065
     Dates: start: 20120220, end: 20120223
  23. TRIMETHOPRIME [Concomitant]
     Route: 065
     Dates: start: 20120222
  24. OPIUM [Concomitant]
     Route: 065
     Dates: start: 20120613
  25. CAFEINE [Concomitant]
     Route: 065
     Dates: start: 20120613

REACTIONS (3)
  - Injection site pain [Recovered/Resolved]
  - Chills [Recovered/Resolved]
  - Pyrexia [Not Recovered/Not Resolved]
